FAERS Safety Report 20278730 (Version 1)
Quarter: 2022Q1

REPORT INFORMATION
  Report Type: Other
  Country: DK (occurrence: DK)
  Receive Date: 20220103
  Receipt Date: 20220103
  Transmission Date: 20220423
  Serious: Yes (Congenital Anomaly, Other)
  Sender: FDA-Public Use
  Company Number: None

PATIENT

DRUGS (3)
  1. TACROLIMUS [Suspect]
     Active Substance: TACROLIMUS
     Indication: Habitual abortion
     Dosage: 2 AND 3 MG ALTERNATING DAILY
     Route: 064
     Dates: start: 20210424
  2. ONDANSETRON [Concomitant]
     Active Substance: ONDANSETRON
     Indication: Hyperemesis gravidarum
     Dosage: 4 MG X 3, AS NEEDED
     Route: 064
     Dates: start: 20210719
  3. CYCLIZINE HYDROCHLORIDE [Concomitant]
     Active Substance: CYCLIZINE HYDROCHLORIDE
     Indication: Hyperemesis gravidarum
     Route: 064
     Dates: start: 20210719

REACTIONS (2)
  - Renal dysplasia [Not Recovered/Not Resolved]
  - Foetal exposure during pregnancy [Not Recovered/Not Resolved]

NARRATIVE: CASE EVENT DATE: 20210927
